FAERS Safety Report 4819194-9 (Version None)
Quarter: 2005Q4

REPORT INFORMATION
  Report Type: 
  Country: None (occurrence: None)
  Receive Date: 20051103
  Receipt Date: 20051101
  Transmission Date: 20060501
  Serious: Yes (Other)
  Sender: FDA-Public Use
  Company Number: US-GLAXOSMITHKLINE-A0580494A

PATIENT
  Age: 57 Year
  Sex: Female

DRUGS (3)
  1. LAMICTAL [Suspect]
     Indication: DRUG USE FOR UNKNOWN INDICATION
     Dosage: 25MG PER DAY
     Route: 048
     Dates: start: 20051027, end: 20051028
  2. PREMARIN [Concomitant]
  3. SYNTHROID [Concomitant]

REACTIONS (6)
  - CHEST DISCOMFORT [None]
  - DECREASED APPETITE [None]
  - INSOMNIA [None]
  - PRURITUS [None]
  - SWOLLEN TONGUE [None]
  - VISUAL ACUITY REDUCED [None]
